FAERS Safety Report 14225047 (Version 1)
Quarter: 2017Q4

REPORT INFORMATION
  Report Type: Report from Study
  Country: MX (occurrence: MX)
  Receive Date: 20171127
  Receipt Date: 20171127
  Transmission Date: 20180321
  Serious: Yes (Hospitalization, Disabling)
  Sender: FDA-Public Use
  Company Number: MX-ROCHE-1938551

PATIENT
  Age: 57 Year
  Sex: Female
  Weight: 73 kg

DRUGS (6)
  1. MABTHERA [Suspect]
     Active Substance: RITUXIMAB
     Indication: RHEUMATOID ARTHRITIS
     Route: 042
     Dates: start: 2013, end: 2014
  2. MABTHERA [Suspect]
     Active Substance: RITUXIMAB
     Dosage: THERAPY SCHEDULED DATE: 23/NOV/2017
     Route: 042
  3. CALCORT [Concomitant]
     Active Substance: DEFLAZACORT
     Indication: RHEUMATOID ARTHRITIS
     Dosage: 1/4 ONCE A DAY
     Route: 048
  4. CORTISONE [Suspect]
     Active Substance: CORTISONE\HYDROCORTISONE
     Indication: RHEUMATOID ARTHRITIS
     Route: 048
     Dates: start: 2016
  5. SIMPONI [Concomitant]
     Active Substance: GOLIMUMAB
     Indication: RHEUMATOID ARTHRITIS
     Route: 058
     Dates: start: 201605, end: 201608
  6. MABTHERA [Suspect]
     Active Substance: RITUXIMAB
     Route: 042
     Dates: start: 20170613

REACTIONS (26)
  - Ill-defined disorder [Unknown]
  - Depression [Recovering/Resolving]
  - Gastritis [Not Recovered/Not Resolved]
  - Vomiting [Recovered/Resolved]
  - Gastrooesophageal reflux disease [Not Recovered/Not Resolved]
  - Spinal pain [Recovering/Resolving]
  - Gastric haemorrhage [Recovered/Resolved]
  - Ill-defined disorder [Not Recovered/Not Resolved]
  - Swelling face [Recovering/Resolving]
  - Nausea [Not Recovered/Not Resolved]
  - Weight decreased [Recovered/Resolved]
  - Tooth infection [Recovered/Resolved]
  - Fluid retention [Not Recovered/Not Resolved]
  - Arthritis [Recovering/Resolving]
  - Abdominal pain upper [Not Recovered/Not Resolved]
  - Cough [Recovered/Resolved]
  - Urticaria [Recovered/Resolved]
  - Weight increased [Unknown]
  - Drug ineffective [Unknown]
  - Anaemia [Recovered/Resolved]
  - Pharyngeal neoplasm [Recovered/Resolved]
  - Back pain [Recovering/Resolving]
  - Dyspepsia [Not Recovered/Not Resolved]
  - Headache [Recovered/Resolved]
  - Arthralgia [Recovering/Resolving]
  - Peripheral swelling [Recovering/Resolving]

NARRATIVE: CASE EVENT DATE: 201609
